FAERS Safety Report 7756580-1 (Version None)
Quarter: 2011Q3

REPORT INFORMATION
  Report Type: 
  Country: None (occurrence: None)
  Receive Date: 20110916
  Receipt Date: 20110909
  Transmission Date: 20111222
  Serious: Yes (Hospitalization)
  Sender: FDA-Public Use
  Company Number: PHHY2011TW75469

PATIENT
  Sex: Female
  Weight: 67 kg

DRUGS (1)
  1. RIVASTIGMINE [Suspect]
     Indication: DEMENTIA
     Dosage: UNK UKN, UNK
     Route: 048
     Dates: start: 20110325

REACTIONS (7)
  - ABDOMINAL PAIN [None]
  - FALL [None]
  - HEPATIC STEATOSIS [None]
  - ABDOMINAL INJURY [None]
  - GASTRITIS [None]
  - DUODENITIS [None]
  - GASTRODUODENITIS [None]
